FAERS Safety Report 21234750 (Version 1)
Quarter: 2022Q3

REPORT INFORMATION
  Report Type: Spontaneous
  Country: AU (occurrence: AU)
  Receive Date: 20220820
  Receipt Date: 20220820
  Transmission Date: 20221026
  Serious: Yes (Other)
  Sender: FDA-Public Use
  Company Number: AU-MLMSERVICE-20220802-3705236-1

PATIENT
  Age: 70 Year
  Sex: Male

DRUGS (6)
  1. ETOPOSIDE [Suspect]
     Active Substance: ETOPOSIDE
     Indication: Plasmablastic lymphoma
     Dosage: CUMULATIVE DOSE: 3 CYCLICAL
     Dates: start: 201910
  2. DOXORUBICIN [Suspect]
     Active Substance: DOXORUBICIN
     Indication: Plasmablastic lymphoma
     Dosage: CUMULATIVE DOSE: 3 CYCLICAL
     Dates: start: 201910
  3. RITUXIMAB [Suspect]
     Active Substance: RITUXIMAB
     Indication: Plasmablastic lymphoma
     Dosage: CUMULATIVE DOSE: 3 CYCLICAL
     Dates: start: 201910
  4. PREDNISOLONE [Suspect]
     Active Substance: PREDNISOLONE
     Indication: Plasmablastic lymphoma
     Dosage: CUMULATIVE DOSE: 3 CYCLICAL
     Dates: start: 201910
  5. CYCLOPHOSPHAMIDE [Suspect]
     Active Substance: CYCLOPHOSPHAMIDE
     Indication: Plasmablastic lymphoma
     Dosage: CUMULATIVE DOSE: 3 CYCLICAL
     Dates: start: 201910
  6. VINCRISTINE [Suspect]
     Active Substance: VINCRISTINE
     Indication: Plasmablastic lymphoma
     Dosage: CUMULATIVE DOSE: 3 CYCLICAL
     Dates: start: 201910

REACTIONS (2)
  - Septic shock [Recovered/Resolved]
  - Strongyloidiasis [Recovered/Resolved]
